FAERS Safety Report 10030076 (Version 2)
Quarter: 2014Q1

REPORT INFORMATION
  Report Type: Spontaneous
  Country: US (occurrence: US)
  Receive Date: 20140323
  Receipt Date: 20140323
  Transmission Date: 20141002
  Serious: No
  Sender: FDA-Public Use
  Company Number: US-ALLERGAN-1304216US

PATIENT
  Age: 41 Year
  Sex: Female

DRUGS (4)
  1. LATISSE 0.03% [Suspect]
     Indication: GROWTH OF EYELASHES
     Dosage: 1 GTT, QHS
     Dates: start: 2010, end: 201303
  2. XANAX [Concomitant]
     Indication: PSYCHOMOTOR HYPERACTIVITY
     Dosage: ONE, PRN
     Route: 048
  3. XANAX [Concomitant]
     Indication: INSOMNIA
  4. BIRTH CONTROL PILL NOS [Concomitant]
     Indication: CONTRACEPTION
     Dosage: UNK

REACTIONS (6)
  - Fear of disease [Not Recovered/Not Resolved]
  - Lid sulcus deepened [Not Recovered/Not Resolved]
  - Visual impairment [Not Recovered/Not Resolved]
  - Incorrect dose administered [Unknown]
  - Wrong technique in drug usage process [Unknown]
  - Sinus headache [Not Recovered/Not Resolved]
